FAERS Safety Report 9897452 (Version 2)
Quarter: 2014Q1

REPORT INFORMATION
  Report Type: Spontaneous
  Country: AU (occurrence: AU)
  Receive Date: 20140214
  Receipt Date: 20140220
  Transmission Date: 20141002
  Serious: Yes (Other)
  Sender: FDA-Public Use
  Company Number: AU-JNJFOC-20140203565

PATIENT
  Age: 72 Year
  Sex: Female
  Weight: 70 kg

DRUGS (2)
  1. STELARA [Suspect]
     Indication: PSORIASIS
     Dosage: AT 0 WEEK
     Route: 058
     Dates: start: 20131113
  2. STELARA [Suspect]
     Indication: PSORIASIS
     Dosage: AT 4 WEEK
     Route: 058
     Dates: start: 20131211

REACTIONS (2)
  - Myocarditis [Not Recovered/Not Resolved]
  - Pain [Unknown]
